FAERS Safety Report 6938185-5 (Version None)
Quarter: 2010Q3

REPORT INFORMATION
  Report Type: 
  Country: None (occurrence: None)
  Receive Date: 20100817
  Receipt Date: 20100806
  Transmission Date: 20110219
  Serious: Yes (Hospitalization)
  Sender: FDA-Public Use
  Company Number: DSJ-2010-13404

PATIENT
  Age: 56 Year
  Sex: Male

DRUGS (5)
  1. BENICAR [Suspect]
     Indication: HYPERTENSION
     Dosage: 20 MG (20 MG,1 IN 1 D), PER ORAL
     Route: 048
     Dates: start: 20090308, end: 20100701
  2. HYDROCHLOROTHIAZIDE [Concomitant]
  3. ATENOLOL [Concomitant]
  4. CLOPIDOGREL (CLOPIDOGREL) (CLOPIDOGREL) [Concomitant]
  5. ACETYLSALICYLIC ACID SRT [Concomitant]

REACTIONS (4)
  - ANGINA PECTORIS [None]
  - ARTERIOSCLEROSIS [None]
  - DRUG INEFFECTIVE [None]
  - HYPERTRIGLYCERIDAEMIA [None]
